FAERS Safety Report 20566112 (Version 1)
Quarter: 2022Q1

REPORT INFORMATION
  Report Type: Spontaneous
  Country: US (occurrence: None)
  Receive Date: 20220307
  Receipt Date: 20220307
  Transmission Date: 20220424
  Serious: No
  Sender: FDA-Public Use
  Company Number: None

PATIENT
  Sex: Female

DRUGS (1)
  1. CLINDAMYCIN [Suspect]
     Active Substance: CLINDAMYCIN
     Indication: Oral infection
     Dosage: OTHER QUANTITY : 1 CAPSULE(S);?FREQUENCY : EVERY 8 HOURS;?
     Route: 048

REACTIONS (6)
  - Stomatitis [None]
  - Conjunctivitis [None]
  - Pharyngeal swelling [None]
  - Dysphonia [None]
  - Oral candidiasis [None]
  - Weight decreased [None]

NARRATIVE: CASE EVENT DATE: 20211031
